FAERS Safety Report 10182478 (Version 2)
Quarter: 2014Q2

REPORT INFORMATION
  Report Type: Report from Study
  Country: CN (occurrence: CN)
  Receive Date: 20140520
  Receipt Date: 20140520
  Transmission Date: 20141212
  Serious: Yes (Hospitalization)
  Sender: FDA-Public Use
  Company Number: CN-JNJFOC-20111104005

PATIENT
  Age: 63 Year
  Sex: Female
  Weight: 48.5 kg

DRUGS (7)
  1. GOLIMUMAB [Suspect]
     Indication: RHEUMATOID ARTHRITIS
     Route: 058
     Dates: start: 20110525
  2. GOLIMUMAB [Suspect]
     Indication: RHEUMATOID ARTHRITIS
     Route: 058
     Dates: start: 20111013
  3. METHOTREXATE [Concomitant]
     Indication: RHEUMATOID ARTHRITIS
     Route: 048
     Dates: start: 200603
  4. INDOMETHACIN [Concomitant]
     Indication: RHEUMATOID ARTHRITIS
     Route: 054
     Dates: start: 201010
  5. BETALOC [Concomitant]
     Indication: HYPERTENSION
     Route: 048
     Dates: start: 20111021, end: 20111119
  6. BETALOC [Concomitant]
     Indication: HYPERTENSION
     Route: 048
     Dates: start: 2009, end: 20111020
  7. BETALOC [Concomitant]
     Indication: HYPERTENSION
     Route: 048
     Dates: start: 20111119

REACTIONS (1)
  - Lung infection [Recovered/Resolved with Sequelae]
